FAERS Safety Report 20556279 (Version 1)
Quarter: 2022Q1

REPORT INFORMATION
  Report Type: Spontaneous
  Country: None (occurrence: GB)
  Receive Date: 20220305
  Receipt Date: 20220305
  Transmission Date: 20220423
  Serious: Yes (Other)
  Sender: FDA-Public Use
  Company Number: GB-Canton Laboratories, LLC-2126478

PATIENT
  Age: 45 Year
  Sex: Female

DRUGS (3)
  1. NAPROSYN [Suspect]
     Active Substance: NAPROXEN
     Indication: Ill-defined disorder
     Route: 048
     Dates: start: 20211231, end: 20220202
  2. LAMOTRIGINE [Concomitant]
     Active Substance: LAMOTRIGINE
  3. MEBEVERINE [Concomitant]
     Active Substance: MEBEVERINE

REACTIONS (6)
  - Abdominal pain upper [Recovering/Resolving]
  - Condition aggravated [Unknown]
  - Fatigue [Recovering/Resolving]
  - Malaise [Unknown]
  - Night sweats [Recovering/Resolving]
  - Abdominal discomfort [Recovering/Resolving]

NARRATIVE: CASE EVENT DATE: 20220108
